FAERS Safety Report 15741315 (Version 1)
Quarter: 2018Q4

REPORT INFORMATION
  Report Type: Spontaneous
  Country: DE (occurrence: DE)
  Receive Date: 20181219
  Receipt Date: 20181219
  Transmission Date: 20190205
  Serious: Yes (Other)
  Sender: FDA-Public Use
  Company Number: DE-ASTRAZENECA-2018SF67292

PATIENT
  Age: 60 Year
  Sex: Female

DRUGS (1)
  1. BRETARIS [Suspect]
     Active Substance: ACLIDINIUM BROMIDE
     Route: 055
     Dates: start: 201804, end: 20181212

REACTIONS (1)
  - Dyspnoea [Recovered/Resolved]
